FAERS Safety Report 21035327 (Version 1)
Quarter: 2022Q3

REPORT INFORMATION
  Report Type: Spontaneous
  Country: RU (occurrence: RU)
  Receive Date: 20220701
  Receipt Date: 20220701
  Transmission Date: 20221026
  Serious: Yes (Other)
  Sender: FDA-Public Use
  Company Number: RU-Merck Healthcare KGaA-9332075

PATIENT
  Age: 55 Year
  Sex: Male

DRUGS (7)
  1. ERBITUX [Suspect]
     Active Substance: CETUXIMAB
     Indication: Laryngeal cancer
     Dosage: 400 MG/M2, WEEKLY (1/W)
     Route: 065
     Dates: start: 202112
  2. ERBITUX [Suspect]
     Active Substance: CETUXIMAB
     Dosage: 250 MG/M2, UNKNOWN
     Route: 065
  3. DOCETAXEL [Concomitant]
     Active Substance: DOCETAXEL
     Indication: Laryngeal cancer
     Dosage: UNK UNK, UNKNOWN
     Route: 065
     Dates: start: 201906, end: 201908
  4. DOCETAXEL [Concomitant]
     Active Substance: DOCETAXEL
     Dosage: 75 MG/M2, UNKNOWN
     Route: 065
     Dates: start: 202112
  5. CISPLATIN [Concomitant]
     Active Substance: CISPLATIN
     Indication: Laryngeal cancer
     Dosage: UNK UNK, UNKNOWN
     Route: 065
     Dates: start: 201906, end: 201908
  6. CISPLATIN [Concomitant]
     Active Substance: CISPLATIN
     Dosage: UNK UNK, UNKNOWN
     Route: 065
     Dates: start: 201909, end: 201910
  7. CISPLATIN [Concomitant]
     Active Substance: CISPLATIN
     Dosage: 75 MG/M2, UNKNOWN
     Route: 065
     Dates: start: 202112

REACTIONS (1)
  - Lymphorrhoea [Unknown]

NARRATIVE: CASE EVENT DATE: 20220201
